FAERS Safety Report 8776204 (Version 3)
Quarter: 2012Q4

REPORT INFORMATION
  Report Type: 
  Country: US (occurrence: US)
  Receive Date: 20120910
  Receipt Date: 20121019
  Transmission Date: 20130627
  Serious: Yes (Other)
  Sender: FDA-Public Use
  Company Number: US-PFIZER INC-2012219233

PATIENT
  Age: 87 Year
  Sex: Female
  Weight: 54.88 kg

DRUGS (2)
  1. LYRICA [Suspect]
     Indication: FIBROMYALGIA
     Dosage: 50 mg, daily
     Dates: start: 201208, end: 201208
  2. LYRICA [Suspect]
     Dosage: 50 mg, daily
     Dates: start: 201209, end: 201209

REACTIONS (12)
  - Visual impairment [Recovered/Resolved]
  - Bedridden [Recovered/Resolved]
  - Delusion [Recovered/Resolved]
  - Feeling abnormal [Recovered/Resolved]
  - Nausea [Recovered/Resolved]
  - Dizziness [Recovered/Resolved]
  - Pain in extremity [Recovered/Resolved]
  - Vision blurred [Recovered/Resolved]
  - Middle insomnia [Recovered/Resolved]
  - Chills [Recovered/Resolved]
  - Inappropriate schedule of drug administration [Unknown]
  - Tremor [Unknown]
